FAERS Safety Report 8875549 (Version 1)
Quarter: 2012Q4

REPORT INFORMATION
  Report Type: 
  Country: US (occurrence: US)
  Receive Date: 20121029
  Receipt Date: 20121029
  Transmission Date: 20130627
  Serious: Yes (Other)
  Sender: FDA-Public Use
  Company Number: US-BRISTOL-MYERS SQUIBB COMPANY-17048844

PATIENT
  Sex: Female

DRUGS (1)
  1. MEGACE [Suspect]
     Indication: UTERINE CANCER

REACTIONS (2)
  - Loss of consciousness [Unknown]
  - Pulmonary thrombosis [Unknown]
